FAERS Safety Report 6166775-9 (Version None)
Quarter: 2009Q2

REPORT INFORMATION
  Report Type: 
  Country: None (occurrence: None)
  Receive Date: 20090424
  Receipt Date: 20090423
  Transmission Date: 20091009
  Serious: Yes (Other)
  Sender: FDA-Public Use
  Company Number: US-PFIZER INC-2009180383

PATIENT
  Sex: Female
  Weight: 59.864 kg

DRUGS (3)
  1. NORVASC [Suspect]
     Indication: HYPERTENSION
     Dates: start: 20020101
  2. AMLODIPINE [Suspect]
     Indication: HYPERTENSION
     Dosage: UNK
     Dates: start: 20070416
  3. HYZAAR [Suspect]
     Indication: HYPERTENSION
     Dosage: FREQUENCY: Q AM, EVERY DAY;
     Dates: end: 20090201

REACTIONS (3)
  - CORONARY ARTERY DISEASE [None]
  - COUGH [None]
  - RASH GENERALISED [None]
